FAERS Safety Report 23307515 (Version 1)
Quarter: 2023Q4

REPORT INFORMATION
  Report Type: Spontaneous
  Country: GB (occurrence: None)
  Receive Date: 20231215
  Receipt Date: 20231215
  Transmission Date: 20240110
  Serious: Yes (Hospitalization, Disabling)
  Sender: FDA-Public Use
  Company Number: None

PATIENT
  Age: 40 Year
  Sex: Male
  Weight: 78.75 kg

DRUGS (1)
  1. CIPROFLOXACIN [Suspect]
     Active Substance: CIPROFLOXACIN
     Indication: Prostatitis
     Dosage: OTHER QUANTITY : 1 TABLET(S);?FREQUENCY : TWICE A DAY;?
     Route: 048

REACTIONS (21)
  - Product prescribing issue [None]
  - Product communication issue [None]
  - Illness [None]
  - Nausea [None]
  - Myoclonus [None]
  - Insomnia [None]
  - Sleep deficit [None]
  - Gait disturbance [None]
  - Weight bearing difficulty [None]
  - Tendon disorder [None]
  - Arthropathy [None]
  - Asthenia [None]
  - Tendon rupture [None]
  - Vitreous floaters [None]
  - Nervous system disorder [None]
  - Autonomic neuropathy [None]
  - Heart rate increased [None]
  - Palpitations [None]
  - Heart rate irregular [None]
  - Muscular weakness [None]
  - Pain [None]

NARRATIVE: CASE EVENT DATE: 20160208
